FAERS Safety Report 5689184-5 (Version None)
Quarter: 2008Q1

REPORT INFORMATION
  Report Type: 
  Country: None (occurrence: None)
  Receive Date: 20080331
  Receipt Date: 20080327
  Transmission Date: 20080703
  Serious: Yes (Other)
  Sender: FDA-Public Use
  Company Number: MW-GILEAD-2008-0015883

PATIENT
  Age: 28 Year
  Sex: Female
  Weight: 49.4 kg

DRUGS (6)
  1. EMTRIVA [Suspect]
     Indication: HIV INFECTION
     Route: 048
     Dates: start: 20060301
  2. DIDANOSINE [Suspect]
     Indication: HIV INFECTION
     Route: 048
     Dates: start: 20060301
  3. ATAZANAVIR SULFATE [Suspect]
     Indication: HIV INFECTION
     Route: 048
     Dates: start: 20060301
  4. GENTAMICIN [Concomitant]
     Indication: PELVIC INFLAMMATORY DISEASE
  5. DOXYCLINE [Concomitant]
     Indication: PELVIC INFLAMMATORY DISEASE
  6. METRONIDAZOLE HCL [Concomitant]
     Indication: PELVIC INFLAMMATORY DISEASE

REACTIONS (1)
  - ABORTION SPONTANEOUS [None]
